FAERS Safety Report 15332059 (Version 1)
Quarter: 2018Q3

REPORT INFORMATION
  Report Type: Report from Study
  Country: None (occurrence: DE)
  Receive Date: 20180829
  Receipt Date: 20180829
  Transmission Date: 20181010
  Serious: Yes (Other)
  Sender: FDA-Public Use
  Company Number: DE-BAUSCH-BL-2018-023728

PATIENT
  Age: 65 Year
  Sex: Female

DRUGS (2)
  1. ENDOXAN [Suspect]
     Active Substance: CYCLOPHOSPHAMIDE
     Indication: IMMUNE THROMBOCYTOPENIC PURPURA
     Route: 065
  2. PREDNISOLONE. [Suspect]
     Active Substance: PREDNISOLONE
     Indication: IMMUNE THROMBOCYTOPENIC PURPURA
     Dosage: INITIALLY, IT WAS GIVEN AS MONO?THERAPY FOR 33 MONTHS. LATER, IT WAS GIVEN WITH CYCLOPHOSPHAMIDE
     Route: 065

REACTIONS (3)
  - Visual field defect [Unknown]
  - Leukopenia [Unknown]
  - Headache [Unknown]
